FAERS Safety Report 6173933-6 (Version None)
Quarter: 2009Q2

REPORT INFORMATION
  Report Type: 
  Country: None (occurrence: None)
  Receive Date: 20090429
  Receipt Date: 20090429
  Transmission Date: 20091009
  Serious: Yes (Hospitalization)
  Sender: FDA-Public Use
  Company Number: None

PATIENT
  Age: 56 Year
  Sex: Male
  Weight: 95.2554 kg

DRUGS (5)
  1. PROPOFOL [Suspect]
     Indication: COLONOSCOPY
     Dosage: 500 MG 1 HOUR PROCEDURE IV HOUR PROCEDURE
     Route: 042
     Dates: start: 20081224, end: 20081224
  2. PROPOFOL [Suspect]
     Indication: OESOPHAGOGASTRODUODENOSCOPY
     Dosage: 500 MG 1 HOUR PROCEDURE IV HOUR PROCEDURE
     Route: 042
     Dates: start: 20081224, end: 20081224
  3. LIDOCAINE [Concomitant]
  4. NUBAIN [Concomitant]
  5. BICITRA [Concomitant]

REACTIONS (8)
  - ASTHENIA [None]
  - CONFUSIONAL STATE [None]
  - CONVULSION [None]
  - DELAYED RECOVERY FROM ANAESTHESIA [None]
  - DISORIENTATION [None]
  - MOTOR DYSFUNCTION [None]
  - MOVEMENT DISORDER [None]
  - SOMNOLENCE [None]
